FAERS Safety Report 14299115 (Version 2)
Quarter: 2018Q1

REPORT INFORMATION
  Report Type: Spontaneous
  Country: DE (occurrence: DE)
  Receive Date: 20171218
  Receipt Date: 20180117
  Transmission Date: 20180509
  Serious: Yes (Hospitalization)
  Sender: FDA-Public Use
  Company Number: DE-009507513-1712DEU008190

PATIENT
  Sex: Female

DRUGS (2)
  1. LORZAAR PLUS 50/12,5 MG FILMTABLETTEN [Suspect]
     Active Substance: HYDROCHLOROTHIAZIDE\LOSARTAN POTASSIUM
     Dosage: 50/12.5MG  IN THE MORNING AND IN THE EVENING
  2. LORZAAR PLUS 50/12,5 MG FILMTABLETTEN [Suspect]
     Active Substance: HYDROCHLOROTHIAZIDE\LOSARTAN POTASSIUM
     Indication: HYPERTENSION
     Dosage: 50/12.5 MG,AT NOON
     Route: 048
     Dates: start: 1997

REACTIONS (8)
  - Onychalgia [Recovering/Resolving]
  - Paraesthesia [Recovering/Resolving]
  - Inappropriate schedule of drug administration [Unknown]
  - Drug prescribing error [Unknown]
  - Burning sensation [Recovering/Resolving]
  - Vitamin D abnormal [Unknown]
  - Blood uric acid abnormal [Unknown]
  - Herpes zoster [Unknown]

NARRATIVE: CASE EVENT DATE: 2011
